FAERS Safety Report 25489770 (Version 2)
Quarter: 2025Q3

REPORT INFORMATION
  Report Type: Spontaneous
  Country: CO (occurrence: CO)
  Receive Date: 20250627
  Receipt Date: 20250707
  Transmission Date: 20251020
  Serious: Yes (Other)
  Sender: NOVARTIS
  Company Number: CO-002147023-NVSC2025CO099564

PATIENT
  Age: 45 Year
  Sex: Male
  Weight: 88.2 kg

DRUGS (4)
  1. CERTICAN [Suspect]
     Active Substance: EVEROLIMUS
     Indication: Heart transplant
     Dosage: 0.75 MG, Q12H
     Route: 048
  2. SACUBITRIL\VALSARTAN [Suspect]
     Active Substance: SACUBITRIL\VALSARTAN
     Indication: Product used for unknown indication
     Dosage: 200 MG, Q12H
     Route: 048
  3. PANTOPRAZOLE [Suspect]
     Active Substance: PANTOPRAZOLE
     Indication: Product used for unknown indication
     Dosage: 40 MG, Q24H (6AM)
     Route: 048
  4. TACROLIMUS [Concomitant]
     Active Substance: TACROLIMUS
     Indication: Heart transplant
     Route: 065

REACTIONS (15)
  - American trypanosomiasis [Unknown]
  - Hypothyroidism [Unknown]
  - Leukopenia [Recovered/Resolved]
  - Left atrial enlargement [Unknown]
  - Body mass index abnormal [Unknown]
  - Renal disorder [Unknown]
  - Blood pressure increased [Unknown]
  - Blood potassium abnormal [Unknown]
  - Blood urea abnormal [Unknown]
  - Blood phosphorus abnormal [Unknown]
  - Blood cholesterol abnormal [Unknown]
  - Obesity [Unknown]
  - High density lipoprotein abnormal [Unknown]
  - Abdominal fat apron [Unknown]
  - Off label use [Unknown]

NARRATIVE: CASE EVENT DATE: 20190311
